FAERS Safety Report 4897572-X (Version None)
Quarter: 2005Q4

REPORT INFORMATION
  Report Type: 
  Country: None (occurrence: None)
  Receive Date: 20051223
  Receipt Date: 20050909
  Transmission Date: 20060501
  Serious: No
  Sender: FDA-Public Use
  Company Number: 05P-163-0310614-00

PATIENT
  Age: 48 Year
  Sex: Female
  Weight: 58.9676 kg

DRUGS (10)
  1. HUMIRA [Suspect]
     Indication: RHEUMATOID ARTHRITIS
     Dosage: 40 MG, 1 IN 2 WK, SUBCUTANEOUS
     Route: 058
     Dates: start: 20041014
  2. METHOTREXATE [Concomitant]
  3. FOLIC ACID [Concomitant]
  4. PREDNISONE [Concomitant]
  5. NAPROXEN [Concomitant]
  6. LANSOPRAZOLE [Concomitant]
  7. ESTAZOLAM [Concomitant]
  8. MULTIVITAMIN [Concomitant]
  9. RISEDRONATE SODIUM [Concomitant]
  10. CALCIUM CARBONATE [Concomitant]

REACTIONS (1)
  - NAUSEA [None]
